FAERS Safety Report 7355859-5 (Version None)
Quarter: 2011Q1

REPORT INFORMATION
  Report Type: 
  Country: None (occurrence: None)
  Receive Date: 20110316
  Receipt Date: 20110117
  Transmission Date: 20110831
  Serious: No
  Sender: FDA-Public Use
  Company Number: US-JNJFOC-20101104279

PATIENT
  Sex: Female
  Weight: 89.81 kg

DRUGS (18)
  1. STELARA [Suspect]
     Route: 058
  2. CRESTOR [Concomitant]
     Route: 048
  3. CYCLOBENZAPRINE [Concomitant]
     Route: 048
  4. TORASEMIDE [Concomitant]
     Route: 048
  5. STELARA [Suspect]
     Route: 058
  6. WARFARIN [Concomitant]
  7. AMOXICILLIN [Concomitant]
     Route: 048
  8. PREVACID [Concomitant]
     Route: 048
  9. LIDODERM [Concomitant]
  10. ETODOLAC [Concomitant]
     Route: 048
  11. STELARA [Suspect]
     Indication: PSORIASIS
     Route: 058
  12. DIGOXIN [Concomitant]
  13. FENTANYL [Concomitant]
  14. TRICOR [Concomitant]
     Route: 048
  15. HYDROCODONE BITARTRATE [Concomitant]
     Route: 048
  16. DIOVAN [Concomitant]
     Route: 048
  17. LOVAZA [Concomitant]
     Route: 048
  18. AMLODIPINE [Concomitant]

REACTIONS (7)
  - HYPERSENSITIVITY [None]
  - DIZZINESS [None]
  - INSOMNIA [None]
  - FEELING HOT [None]
  - SWELLING FACE [None]
  - FLUSHING [None]
  - HEADACHE [None]
